FAERS Safety Report 18767950 (Version 1)
Quarter: 2021Q1

REPORT INFORMATION
  Report Type: Spontaneous
  Country: US (occurrence: US)
  Receive Date: 20210120
  Receipt Date: 20210120
  Transmission Date: 20210419
  Serious: Yes (Hospitalization)
  Sender: FDA-Public Use
  Company Number: None

PATIENT
  Age: 65 Year
  Sex: Female

DRUGS (13)
  1. ESCITALOPRAM [Concomitant]
     Active Substance: ESCITALOPRAM OXALATE
  2. MAGNESIUM [Concomitant]
     Active Substance: MAGNESIUM
  3. HYDROCODONE BITARTRATE AND ACETAMINOPHEN [Concomitant]
     Active Substance: ACETAMINOPHEN\HYDROCODONE BITARTRATE
  4. METOPROLOL TART [Concomitant]
     Active Substance: METOPROLOL TARTRATE
  5. EPCLUSA [Suspect]
     Active Substance: SOFOSBUVIR\VELPATASVIR
     Indication: HEPATITIS C
     Dosage: ?          QUANTITY:28 DF DOSAGE FORM;?
     Route: 048
     Dates: start: 20200806, end: 20200823
  6. FLUTICASONE. [Concomitant]
     Active Substance: FLUTICASONE
  7. ADDERALL XR [Concomitant]
     Active Substance: AMPHETAMINE ASPARTATE\AMPHETAMINE SULFATE\DEXTROAMPHETAMINE SACCHARATE\DEXTROAMPHETAMINE SULFATE
  8. ABILIFY [Concomitant]
     Active Substance: ARIPIPRAZOLE
  9. DOXEPIN [Concomitant]
     Active Substance: DOXEPIN
  10. LEVETIRACETAM. [Concomitant]
     Active Substance: LEVETIRACETAM
  11. FUROSEMIDE. [Concomitant]
     Active Substance: FUROSEMIDE
  12. CYCLOBENZAPRINE. [Concomitant]
     Active Substance: CYCLOBENZAPRINE
  13. LORAZEPAM. [Concomitant]
     Active Substance: LORAZEPAM

REACTIONS (8)
  - Ascites [None]
  - Biliary dilatation [None]
  - Cholelithiasis [None]
  - Nausea [None]
  - Vomiting [None]
  - Pleuritic pain [None]
  - Diarrhoea [None]
  - Gallbladder polyp [None]

NARRATIVE: CASE EVENT DATE: 20200823
